FAERS Safety Report 13082116 (Version 3)
Quarter: 2017Q1

REPORT INFORMATION
  Report Type: Spontaneous
  Country: FR (occurrence: FR)
  Receive Date: 20170103
  Receipt Date: 20170105
  Transmission Date: 20170428
  Serious: No
  Sender: FDA-Public Use
  Company Number: FR-SA-2016SA234229

PATIENT
  Sex: Female

DRUGS (1)
  1. AUBAGIO [Suspect]
     Active Substance: TERIFLUNOMIDE
     Indication: MULTIPLE SCLEROSIS
     Route: 065

REACTIONS (10)
  - Oropharyngeal pain [Unknown]
  - Urinary tract disorder [Unknown]
  - Ear infection [Unknown]
  - Gastroenteritis [Unknown]
  - Gastrointestinal disorder [Unknown]
  - Conjunctivitis [Unknown]
  - Middle insomnia [Unknown]
  - Alopecia [Unknown]
  - Condition aggravated [Unknown]
  - Acne [Unknown]

NARRATIVE: CASE EVENT DATE: 201611
